FAERS Safety Report 5585246-1 (Version None)
Quarter: 2008Q1

REPORT INFORMATION
  Report Type: 
  Country: None (occurrence: None)
  Receive Date: 20080104
  Receipt Date: 20080104
  Transmission Date: 20080703
  Serious: Yes (Hospitalization, Other)
  Sender: FDA-Public Use
  Company Number: None

PATIENT
  Age: 54 Year
  Sex: Female
  Weight: 68.0396 kg

DRUGS (1)
  1. LEVAQUIN [Suspect]
     Indication: CYSTITIS
     Dosage: 1 DAILY
     Dates: start: 20071127, end: 20071215

REACTIONS (6)
  - BACK PAIN [None]
  - BURNING SENSATION [None]
  - EYE PAIN [None]
  - NERVOUS SYSTEM DISORDER [None]
  - PARAESTHESIA [None]
  - TENDON PAIN [None]
